FAERS Safety Report 4595735-4 (Version None)
Quarter: 2005Q1

REPORT INFORMATION
  Report Type: 
  Country: None (occurrence: None)
  Receive Date: 20050224
  Receipt Date: 20050208
  Transmission Date: 20050727
  Serious: Yes (Other)
  Sender: FDA-Public Use
  Company Number: DSA_25901_2005

PATIENT
  Age: 67 Year
  Sex: Male

DRUGS (10)
  1. ENALAPRIL MALEATE [Suspect]
     Dosage: DF PO
     Route: 048
     Dates: end: 20041112
  2. ACETAMINOPHEN [Concomitant]
  3. ALBUTEROL [Concomitant]
  4. GAVISCON LIQUID ^BOEHRINGER INGELHEIM^ [Concomitant]
  5. AMITRIPTYLINE HYDROCHLORIDE [Concomitant]
  6. ASPIRIN [Concomitant]
  7. BENDROFLUMETHIAZIDE [Concomitant]
  8. SERETIDE ^ALLEN + HANBURYS LTD^ [Concomitant]
  9. IPATROPIUM BROMIDE [Concomitant]
  10. TERAZOSIN HYDROCHLORIDE [Concomitant]

REACTIONS (1)
  - PEYRONIE'S DISEASE [None]
